FAERS Safety Report 6031457-0 (Version None)
Quarter: 2009Q1

REPORT INFORMATION
  Report Type: 
  Country: None (occurrence: None)
  Receive Date: 20090108
  Receipt Date: 20081224
  Transmission Date: 20090719
  Serious: Yes (Death, Hospitalization)
  Sender: FDA-Public Use
  Company Number: IN-PFIZER INC-2008087419

PATIENT

DRUGS (13)
  1. BLINDED *PLACEBO [Suspect]
     Indication: COLON CANCER
     Dosage: 37.5 MG, 1X/DAY
     Route: 048
     Dates: start: 20080122
  2. BLINDED SUNITINIB MALATE [Suspect]
     Indication: COLON CANCER
     Dosage: 37.5 MG, 1X/DAY
     Route: 048
     Dates: start: 20080122
  3. IRINOTECAN HCL [Suspect]
     Indication: COLON CANCER
     Dosage: 180 MG/M2, 1 EVERY 15 DAYS
     Route: 042
     Dates: start: 20080122, end: 20081006
  4. CALCIUM FOLINATE [Suspect]
     Indication: COLON CANCER
     Dosage: 200 MG/M2, 1 EVERY 15 DAYS
     Dates: start: 20080122, end: 20081006
  5. FLUOROURACIL [Suspect]
     Indication: COLON CANCER
     Dosage: 400 MG/M2, EVERY 15 DAYS BOLUS
     Dates: start: 20080122, end: 20081006
  6. FLUOROURACIL [Suspect]
     Dosage: 2400 MG/M2, EVERY 15 DAYS, INFUSION
     Dates: start: 20080122
  7. DOMPERIDONE/PANTOPRAZOLE [Concomitant]
     Route: 048
     Dates: start: 20080122
  8. CYPROHEPTADINE HCL [Concomitant]
     Route: 048
     Dates: start: 20080122
  9. ONDANSETRON HYDROCHLORIDE [Concomitant]
     Route: 048
     Dates: start: 20080122, end: 20081009
  10. GRANISETRON HCL [Concomitant]
     Dates: start: 20080122, end: 20081006
  11. DEXAMETHASONE [Concomitant]
     Route: 042
     Dates: start: 20080122, end: 20081006
  12. TRAMAZAC [Concomitant]
     Route: 048
     Dates: start: 20081007, end: 20081010
  13. LOPERAMIDE HCL [Concomitant]
     Route: 048
     Dates: start: 20081007, end: 20081008

REACTIONS (5)
  - DEHYDRATION [None]
  - DIARRHOEA [None]
  - MULTI-ORGAN FAILURE [None]
  - NEUTROPENIC SEPSIS [None]
  - VOMITING [None]
